FAERS Safety Report 23232046 (Version 2)
Quarter: 2024Q1

REPORT INFORMATION
  Report Type: Report from Study
  Country: US (occurrence: None)
  Receive Date: 20231127
  Receipt Date: 20240112
  Transmission Date: 20240409
  Serious: Yes (Death, Hospitalization, Other)
  Sender: FDA-Public Use
  Company Number: 2023A266354

PATIENT
  Age: 23667 Day
  Sex: Male
  Weight: 78 kg

DRUGS (1)
  1. TAGRISSO [Suspect]
     Active Substance: OSIMERTINIB
     Indication: Lung cancer metastatic
     Route: 048
     Dates: start: 20210707, end: 2023

REACTIONS (24)
  - Nausea [Fatal]
  - Vomiting [Fatal]
  - Metastases to meninges [Unknown]
  - Condition aggravated [Unknown]
  - Seizure [Unknown]
  - Failure to thrive [Unknown]
  - Cystitis [Unknown]
  - Urinary incontinence [Unknown]
  - Gait disturbance [Unknown]
  - Erosive oesophagitis [Unknown]
  - Hypertension [Unknown]
  - Fall [Unknown]
  - Asthenia [Unknown]
  - Body mass index abnormal [Unknown]
  - Hyponatraemia [Unknown]
  - Hydrocephalus [Unknown]
  - Metastases to central nervous system [Unknown]
  - Generalised tonic-clonic seizure [Unknown]
  - Malaise [Unknown]
  - Confusional state [Unknown]
  - Visual impairment [Unknown]
  - Drug intolerance [Unknown]
  - Electroencephalogram abnormal [Unknown]
  - Encephalopathy [Unknown]

NARRATIVE: CASE EVENT DATE: 20230621
